FAERS Safety Report 20738424 (Version 1)
Quarter: 2022Q2

REPORT INFORMATION
  Report Type: Spontaneous
  Country: US (occurrence: None)
  Receive Date: 20220421
  Receipt Date: 20220421
  Transmission Date: 20220721
  Serious: Yes (Death, Hospitalization)
  Sender: FDA-Public Use
  Company Number: None

PATIENT
  Age: 59 Year
  Sex: Female
  Weight: 84.82 kg

DRUGS (32)
  1. TAFINLAR [Suspect]
     Active Substance: DABRAFENIB MESYLATE
     Indication: Thyroid cancer
     Dosage: FREQUENCY : TWICE A DAY;?
     Route: 048
  2. MEKINIST [Suspect]
     Active Substance: TRAMETINIB DIMETHYL SULFOXIDE
     Indication: Thyroid cancer
     Dosage: FREQUENCY : DAILY;?
     Route: 048
  3. ELIQUIS [Concomitant]
     Active Substance: APIXABAN
  4. LIPITOR [Concomitant]
     Active Substance: ATORVASTATIN CALCIUM
  5. CARDIZEM [Concomitant]
     Active Substance: DILTIAZEM HYDROCHLORIDE
  6. ADVAIR HFA [Concomitant]
     Active Substance: FLUTICASONE PROPIONATE\SALMETEROL XINAFOATE
  7. FERRIC [Concomitant]
  8. CALCIUM [Concomitant]
     Active Substance: CALCIUM
  9. HYDROXYZINE [Concomitant]
     Active Substance: HYDROXYZINE HYDROCHLORIDE
  10. ALBUTEROL [Concomitant]
     Active Substance: ALBUTEROL
  11. SYNTHROID [Concomitant]
     Active Substance: LEVOTHYROXINE SODIUM
  12. ATIVAN [Concomitant]
     Active Substance: LORAZEPAM
  13. MECLIZINE [Concomitant]
     Active Substance: MECLIZINE HYDROCHLORIDE
  14. SINGULAIR [Concomitant]
     Active Substance: MONTELUKAST SODIUM
  15. NITROGLYCERIN [Concomitant]
     Active Substance: NITROGLYCERIN
  16. NOVOLOG [Concomitant]
     Active Substance: INSULIN ASPART
  17. OMEGA 3 [Concomitant]
     Active Substance: CAPSAICIN
  18. PROTONIX [Concomitant]
     Active Substance: PANTOPRAZOLE SODIUM
  19. PERCOCET [Concomitant]
     Active Substance: ACETAMINOPHEN\OXYCODONE HYDROCHLORIDE
  20. PREDNISONE [Concomitant]
     Active Substance: PREDNISONE
  21. COMPAZINE [Concomitant]
     Active Substance: PROCHLORPERAZINE MALEATE
  22. REGLAN [Concomitant]
     Active Substance: METOCLOPRAMIDE HYDROCHLORIDE
  23. REQUIP [Concomitant]
     Active Substance: ROPINIROLE HYDROCHLORIDE
  24. ZOLOFT [Concomitant]
     Active Substance: SERTRALINE HYDROCHLORIDE
  25. SPIRIVA [Concomitant]
     Active Substance: TIOTROPIUM BROMIDE MONOHYDRATE
  26. TRESIBA [Concomitant]
     Active Substance: INSULIN DEGLUDEC
  27. VITAMIN B COMPLEX WITH FOLATE [Concomitant]
  28. ZOFRAN [Concomitant]
     Active Substance: ONDANSETRON HYDROCHLORIDE
  29. AMBIEN [Concomitant]
     Active Substance: ZOLPIDEM TARTRATE
  30. XANAX [Concomitant]
     Active Substance: ALPRAZOLAM
  31. BENADRYL [Concomitant]
     Active Substance: DIPHENHYDRAMINE HYDROCHLORIDE
  32. GUANABANAS [Concomitant]

REACTIONS (2)
  - Septic shock [None]
  - Decubitus ulcer [None]

NARRATIVE: CASE EVENT DATE: 20220312
